FAERS Safety Report 14673688 (Version 5)
Quarter: 2018Q3

REPORT INFORMATION
  Report Type: Report from Study
  Country: CA (occurrence: CA)
  Receive Date: 20180323
  Receipt Date: 20180813
  Transmission Date: 20181010
  Serious: Yes (Hospitalization, Other)
  Sender: FDA-Public Use
  Company Number: CA-BRISTOL-MYERS SQUIBB COMPANY-BMS-2017-119929

PATIENT
  Age: 83 Year
  Sex: Female

DRUGS (1)
  1. ABATACEPT [Suspect]
     Active Substance: ABATACEPT
     Indication: RHEUMATOID ARTHRITIS
     Dosage: 750 MG, Q4WK
     Route: 042
     Dates: start: 20171215, end: 20180208

REACTIONS (34)
  - Headache [Unknown]
  - Sputum discoloured [Unknown]
  - Wound infection [Unknown]
  - Rhinorrhoea [Unknown]
  - Back pain [Unknown]
  - Oedema peripheral [Unknown]
  - Eating disorder [Unknown]
  - Pain [Unknown]
  - Stomatitis [Recovering/Resolving]
  - Chills [Unknown]
  - Face oedema [Unknown]
  - Nausea [Unknown]
  - Fall [Recovering/Resolving]
  - Weight increased [Unknown]
  - Localised oedema [Unknown]
  - Wound [Unknown]
  - Hospitalisation [Unknown]
  - Bone cancer metastatic [Unknown]
  - Dysphonia [Unknown]
  - Visual impairment [Unknown]
  - Erythema [Unknown]
  - Pneumonia [Not Recovered/Not Resolved]
  - Peripheral swelling [Recovering/Resolving]
  - Lung cancer metastatic [Unknown]
  - Asthenia [Recovered/Resolved]
  - Groin pain [Unknown]
  - Dyspnoea [Unknown]
  - Dyskinesia [Unknown]
  - Nasopharyngitis [Unknown]
  - Fatigue [Unknown]
  - Muscular weakness [Unknown]
  - Pain in extremity [Unknown]
  - Chest pain [Unknown]
  - Pulmonary pain [Unknown]

NARRATIVE: CASE EVENT DATE: 201712
